FAERS Safety Report 8824397 (Version 1)
Quarter: 2012Q4

REPORT INFORMATION
  Report Type: 
  Country: US (occurrence: US)
  Receive Date: 20121004
  Receipt Date: 20121004
  Transmission Date: 20130627
  Serious: No
  Sender: FDA-Public Use
  Company Number: US-JNJFOC-20120909564

PATIENT
  Sex: Female
  Weight: 64.86 kg

DRUGS (1)
  1. DURAGESIC [Suspect]
     Indication: PAIN
     Route: 062
     Dates: start: 201207

REACTIONS (2)
  - Product quality issue [Unknown]
  - Wrong technique in drug usage process [Not Recovered/Not Resolved]
